FAERS Safety Report 19615637 (Version 1)
Quarter: 2021Q3

REPORT INFORMATION
  Report Type: Spontaneous
  Country: CA (occurrence: CA)
  Receive Date: 20210727
  Receipt Date: 20210727
  Transmission Date: 20211014
  Serious: Yes (Death, Hospitalization, Other)
  Sender: FDA-Public Use
  Company Number: CA-HLS-202108011

PATIENT
  Age: 74 Year
  Sex: Female

DRUGS (25)
  1. CALCIUM CARBONATE. [Suspect]
     Active Substance: CALCIUM CARBONATE
     Dosage: UNKNOWN, 1 EVERY 1 DAYS
     Route: 048
  2. HYDROXOCOBALAMIN ACETATE. [Suspect]
     Active Substance: HYDROXOCOBALAMIN ACETATE
     Dosage: UNKNOWN, 1 EVERY 1 DAYS
     Route: 048
  3. METOPROLOL. [Suspect]
     Active Substance: METOPROLOL
     Dosage: 2 EVERY 1 DAYS
     Route: 065
  4. SENNOSIDES. [Suspect]
     Active Substance: SENNOSIDES
     Dosage: 1 EVERY 1 DAYS
     Route: 048
  5. BISACODYL. [Suspect]
     Active Substance: BISACODYL
     Dosage: UNKNOWN
     Route: 054
  6. SALBUTAMOL [Suspect]
     Active Substance: ALBUTEROL
     Dosage: UNKNOWN
     Route: 065
  7. ZOPICLONE [Suspect]
     Active Substance: ZOPICLONE
     Dosage: UNKNOWN, 1 EVERY 1 DAYS
     Route: 048
  8. CLOPIDOGREL BISULFATE. [Suspect]
     Active Substance: CLOPIDOGREL BISULFATE
     Dosage: 1 EVERY 1 DAYS
     Route: 048
  9. IRBESARTAN. [Suspect]
     Active Substance: IRBESARTAN
     Dosage: UNKNOWN, 1 EVERY 1 DAYS
     Route: 048
  10. IRON SULPHATE [Suspect]
     Active Substance: FERROUS SULFATE ANHYDROUS
     Dosage: 1 EVERY 1 DAYS
     Route: 048
  11. MORPHINE SULFATE. [Suspect]
     Active Substance: MORPHINE SULFATE
     Dosage: 4 EVERY 1 DAYS
     Route: 048
  12. ACETAMINOPHEN/CODEI NE PHOSPHATE [Suspect]
     Active Substance: ACETAMINOPHEN\CODEINE PHOSPHATE
     Dosage: UNKNOWN
     Route: 048
  13. BIOTIN/CALCIUM CARBONATE/CALCIUM DPANTOTHENATE/ CA [IRON\MINERALS\VITAMINS] [Suspect]
     Active Substance: IRON\MINERALS\VITAMINS
     Dosage: UNKNOWN
     Route: 048
  14. NITROFURANTOIN. [Suspect]
     Active Substance: NITROFURANTOIN
     Dosage: 2 EVERY 1 DAYS
     Route: 065
  15. PANTOPRAZOLE [Suspect]
     Active Substance: PANTOPRAZOLE
     Dosage: UNKNOWN
     Route: 048
  16. AMINO ACIDS/FRUCTOSE/GLYCI NE MAX/MINERALS NOS/SAFFLOWER OIL/VITAMINS NOS (DIETARY SUPPLEMENT) [Suspect]
     Active Substance: DIETARY SUPPLEMENT
     Dosage: UNKNOWN, 2 EVERY 1 DAYS
     Route: 048
  17. ATORVASTATIN [Concomitant]
     Active Substance: ATORVASTATIN
     Dosage: UNKNOWN
     Route: 048
  18. CLOZAPINE. [Suspect]
     Active Substance: CLOZAPINE
     Indication: PRODUCT USED FOR UNKNOWN INDICATION
     Dosage: UNKNOWN, 1 EVERY 1 DAYS
     Route: 065
  19. CLOZAPINE. [Suspect]
     Active Substance: CLOZAPINE
     Indication: PRODUCT USED FOR UNKNOWN INDICATION
     Dosage: UNKNOWN, 1 EVERY 1 DAYS
     Route: 048
  20. DILAUDID [Suspect]
     Active Substance: HYDROMORPHONE HYDROCHLORIDE
     Dosage: UNKNOWN, 1 EVERY 4 HOURS
     Route: 048
  21. OLOPATADINE HYDROCHLORIDE. [Suspect]
     Active Substance: OLOPATADINE HYDROCHLORIDE
     Dosage: 2 EVERY 1 DAYS
     Route: 048
  22. TOPIRAMATE. [Suspect]
     Active Substance: TOPIRAMATE
     Dosage: UNKNOWN, 1 EVERY 1 DAYS
     Route: 065
  23. ERGOCALCIFEROL. [Suspect]
     Active Substance: ERGOCALCIFEROL
     Dosage: UNKNOWN, 1 EVERY 1 DAYS
     Route: 048
  24. SYNTHROID [Suspect]
     Active Substance: LEVOTHYROXINE SODIUM
     Dosage: 1 EVERY 1 DAYS
     Route: 048
  25. AMLODIPINE [Suspect]
     Active Substance: AMLODIPINE BESYLATE
     Dosage: 1 EVERY 1 DAYS
     Route: 048

REACTIONS (1)
  - Death [Fatal]
